FAERS Safety Report 11790620 (Version 1)
Quarter: 2015Q4

REPORT INFORMATION
  Report Type: Spontaneous
  Country: US (occurrence: US)
  Receive Date: 20151201
  Receipt Date: 20151201
  Transmission Date: 20160305
  Serious: No
  Sender: FDA-Public Use
  Company Number: US-PFIZER INC-2015412000

PATIENT
  Age: 55 Year
  Sex: Female
  Weight: 68.4 kg

DRUGS (4)
  1. PRISTIQ EXTENDED RELEASE [Suspect]
     Active Substance: DESVENLAFAXINE SUCCINATE
     Indication: ANXIETY
     Dosage: 25 MG, ONCE AT NIGHT
     Dates: start: 20151107, end: 201511
  2. PRISTIQ EXTENDED RELEASE [Suspect]
     Active Substance: DESVENLAFAXINE SUCCINATE
     Dosage: 25 MG, TAKES IT AT 6:30AM EVERY MORNING
     Dates: start: 201511
  3. ESTRADIOL. [Concomitant]
     Active Substance: ESTRADIOL
     Indication: ANXIETY
     Dosage: 1 MG, 1X/DAY
     Dates: start: 201510
  4. MEDROXYPROGESTERONE [Concomitant]
     Active Substance: MEDROXYPROGESTERONE
     Indication: ANXIETY
     Dosage: 2.5 MG, ONCE A DAY
     Dates: start: 201510

REACTIONS (6)
  - Anxiety [Unknown]
  - Disturbance in attention [Unknown]
  - Depression [Unknown]
  - Drug ineffective for unapproved indication [Not Recovered/Not Resolved]
  - Poor quality sleep [Not Recovered/Not Resolved]
  - Condition aggravated [Unknown]

NARRATIVE: CASE EVENT DATE: 201511
